FAERS Safety Report 16081400 (Version 1)
Quarter: 2019Q1

REPORT INFORMATION
  Report Type: Spontaneous
  Country: CA (occurrence: CA)
  Receive Date: 20190316
  Receipt Date: 20190316
  Transmission Date: 20190418
  Serious: Yes (Life-Threatening, Disabling, Other)
  Sender: FDA-Public Use
  Company Number: CA-AUROBINDO-AUR-APL-2019-014182

PATIENT

DRUGS (1)
  1. FINASTERIDE TABLETS [Suspect]
     Active Substance: FINASTERIDE
     Indication: ALOPECIA
     Dosage: 0.25 MILLIGRAM, DAILY
     Route: 048

REACTIONS (8)
  - Depression [Not Recovered/Not Resolved]
  - Erectile dysfunction [Not Recovered/Not Resolved]
  - Genital pain [Not Recovered/Not Resolved]
  - Fatigue [Not Recovered/Not Resolved]
  - Genital disorder male [Not Recovered/Not Resolved]
  - Feeling abnormal [Not Recovered/Not Resolved]
  - Memory impairment [Not Recovered/Not Resolved]
  - Suicidal ideation [Not Recovered/Not Resolved]
